FAERS Safety Report 8882620 (Version 2)
Quarter: 2013Q1

REPORT INFORMATION
  Report Type: Report from Study
  Country: AU (occurrence: AU)
  Receive Date: 20121102
  Receipt Date: 20130103
  Transmission Date: 20140127
  Serious: Yes (Death, Hospitalization, Other)
  Sender: FDA-Public Use
  Company Number: PHHO2012AU015785

PATIENT
  Age: 78 Year
  Sex: Male

DRUGS (5)
  1. EVEROLIMUS [Suspect]
     Indication: ACUTE MYELOID LEUKAEMIA
     Dosage: 10 MG, DAILY
     Route: 048
     Dates: start: 20101224
  2. EVEROLIMUS [Suspect]
     Dosage: 10 MG, DAILY
     Route: 048
     Dates: start: 20121019, end: 20121022
  3. AZACITIDINE [Suspect]
     Indication: ACUTE MYELOID LEUKAEMIA
     Dosage: 165 MG, QD
     Route: 048
     Dates: start: 20101220
  4. AZACITIDINE [Suspect]
     Dosage: 165 MG, QD
     Route: 048
     Dates: start: 20121015, end: 20121018
  5. AZACITIDINE [Suspect]
     Dosage: 156 MG, QD
     Route: 048
     Dates: end: 20121126

REACTIONS (2)
  - Ventricular fibrillation [Fatal]
  - Left ventricular dysfunction [Recovering/Resolving]
